FAERS Safety Report 7980002 (Version 3)
Quarter: 2013Q1

REPORT INFORMATION
  Report Type: Report from Study
  Country: HU (occurrence: HU)
  Receive Date: 20110608
  Receipt Date: 20130314
  Transmission Date: 20140127
  Serious: Yes (Death, Hospitalization)
  Sender: FDA-Public Use
  Company Number: HU-ELI_LILLY_AND_COMPANY-HU201105005107

PATIENT
  Age: 65 Year
  Sex: Male
  Weight: 60 kg

DRUGS (2)
  1. GEMCITABINE HYDROCHLORIDE [Suspect]
     Indication: NON-SMALL CELL LUNG CANCER
     Dosage: 2063 MG, OTHER
     Dates: start: 20110503
  2. CISPLATIN [Suspect]
     Indication: NON-SMALL CELL LUNG CANCER
     Dosage: 137 MG, OTHER
     Dates: start: 20110503

REACTIONS (4)
  - Sepsis [Fatal]
  - Anaemia [Fatal]
  - Thrombocytopenia [Fatal]
  - Neutropenia [Not Recovered/Not Resolved]
